FAERS Safety Report 4354764-6 (Version None)
Quarter: 2004Q2

REPORT INFORMATION
  Report Type: 
  Country: None (occurrence: None)
  Receive Date: 20040507
  Receipt Date: 20040428
  Transmission Date: 20050107
  Serious: Yes (Life-Threatening)
  Sender: FDA-Public Use
  Company Number: FR-AMGEN-UK074262

PATIENT
  Age: 11 Year
  Sex: Male
  Weight: 40 kg

DRUGS (9)
  1. NEUPOGEN [Suspect]
     Indication: DRUG USE FOR UNKNOWN INDICATION
     Route: 042
     Dates: start: 20040313, end: 20040325
  2. SOLU-MEDROL [Suspect]
  3. ZOVIRAX [Suspect]
  4. OMEPRAZOLE [Suspect]
  5. FLUCONAZOLE [Suspect]
  6. CYCLOSPORINE [Suspect]
  7. FORTUM [Concomitant]
  8. TARGOCID [Concomitant]
  9. RIVOTRIL [Concomitant]

REACTIONS (4)
  - BRONCHOSPASM [None]
  - DYSPNOEA [None]
  - OXYGEN SATURATION DECREASED [None]
  - TACHYCARDIA [None]
